FAERS Safety Report 7626698-2 (Version None)
Quarter: 2011Q3

REPORT INFORMATION
  Report Type: 
  Country: None (occurrence: None)
  Receive Date: 20110721
  Receipt Date: 20110622
  Transmission Date: 20111222
  Serious: No
  Sender: FDA-Public Use
  Company Number: US-NOVEN-11US002687

PATIENT
  Sex: Male

DRUGS (5)
  1. LISINOPRIL [Concomitant]
     Indication: BLOOD PRESSURE
  2. NEXIUM [Concomitant]
     Indication: PRODUCT USED FOR UNKNOWN INDICATION
  3. SYNTHROID [Concomitant]
     Indication: HYPOTHYROIDISM
  4. FENTANYL [Suspect]
     Indication: NEOPLASM MALIGNANT
     Dosage: 75 UG, Q72H
     Route: 062
     Dates: start: 20110601
  5. CELEBREX [Concomitant]
     Indication: PRODUCT USED FOR UNKNOWN INDICATION
     Dosage: UNK

REACTIONS (6)
  - COUGH [None]
  - FEELING JITTERY [None]
  - OVERDOSE [None]
  - TENSION [None]
  - NERVOUSNESS [None]
  - CHILLS [None]
